FAERS Safety Report 6024593-6 (Version None)
Quarter: 2008Q4

REPORT INFORMATION
  Report Type: 
  Country: None (occurrence: None)
  Receive Date: 20081231
  Receipt Date: 20081119
  Transmission Date: 20090506
  Serious: No
  Sender: FDA-Public Use
  Company Number: US-BRISTOL-MYERS SQUIBB COMPANY-14412522

PATIENT
  Age: 66 Year
  Sex: Female

DRUGS (2)
  1. ORENCIA [Suspect]
     Indication: RHEUMATOID ARTHRITIS
     Dosage: RECIEVED 3 INFUSIONS. EVENT OCCURED DURING 1ST INFUSION
     Dates: start: 20080601
  2. METHOTREXATE [Concomitant]

REACTIONS (1)
  - URTICARIA [None]
